FAERS Safety Report 5767787-7 (Version None)
Quarter: 2008Q2

REPORT INFORMATION
  Report Type: 
  Country: None (occurrence: None)
  Receive Date: 20080612
  Receipt Date: 20080604
  Transmission Date: 20081010
  Serious: Yes (Death, Hospitalization)
  Sender: FDA-Public Use
  Company Number: DE-WYE-H04371108

PATIENT
  Sex: Male

DRUGS (3)
  1. CELLCEPT [Suspect]
     Indication: PROPHYLAXIS AGAINST TRANSPLANT REJECTION
     Route: 048
     Dates: start: 20070925
  2. ZIENAM [Suspect]
     Indication: INFECTION
     Dosage: DOSE AND FREQUENCY NOT SPECIFIED
     Route: 065
  3. RAPAMUNE [Suspect]
     Indication: PROPHYLAXIS AGAINST TRANSPLANT REJECTION
     Route: 048
     Dates: start: 20070925

REACTIONS (3)
  - CONVULSION [None]
  - GASTROINTESTINAL INFECTION [None]
  - MULTI-ORGAN FAILURE [None]
